FAERS Safety Report 18023012 (Version 1)
Quarter: 2020Q3

REPORT INFORMATION
  Report Type: Spontaneous
  Country: US (occurrence: US)
  Receive Date: 20200715
  Receipt Date: 20200715
  Transmission Date: 20201103
  Serious: No
  Sender: FDA-Public Use
  Company Number: US-ALLERGAN-2023119US

PATIENT
  Sex: Female

DRUGS (2)
  1. UBRELVY [Suspect]
     Active Substance: UBROGEPANT
     Indication: MIGRAINE
     Dosage: 50 MG
     Route: 065
     Dates: start: 20200609
  2. UBRELVY [Suspect]
     Active Substance: UBROGEPANT
     Dosage: 50 MG (AFTER 2 HOURS)
     Route: 065
     Dates: start: 20200609

REACTIONS (2)
  - Nausea [Unknown]
  - Drug ineffective [Unknown]
